FAERS Safety Report 5464936-5 (Version None)
Quarter: 2007Q3

REPORT INFORMATION
  Report Type: 
  Country: None (occurrence: None)
  Receive Date: 20070921
  Receipt Date: 20070911
  Transmission Date: 20080115
  Serious: Yes (Other)
  Sender: FDA-Public Use
  Company Number: JP-PFIZER INC-2007076870

PATIENT
  Age: 52 Year
  Sex: Female

DRUGS (4)
  1. XALATAN [Suspect]
     Route: 047
  2. ALL OTHER THERAPEUTIC PRODUCTS [Suspect]
     Route: 048
  3. ALL OTHER THERAPEUTIC PRODUCTS [Concomitant]
  4. AZOPT [Concomitant]
     Route: 047

REACTIONS (1)
  - INTRAOCULAR PRESSURE INCREASED [None]
